FAERS Safety Report 22528572 (Version 2)
Quarter: 2023Q2

REPORT INFORMATION
  Report Type: Report from Study
  Country: US (occurrence: None)
  Receive Date: 20230607
  Receipt Date: 20230623
  Transmission Date: 20230721
  Serious: Yes (Hospitalization, Other)
  Sender: FDA-Public Use
  Company Number: US-ROCHE-3361800

PATIENT
  Age: 71 Year
  Sex: Female

DRUGS (16)
  1. VENETOCLAX [Suspect]
     Active Substance: VENETOCLAX
     Indication: Acute myeloid leukaemia
     Dosage: DATE OF LAST DOSE (PRIOR TO AE) 03/OCT/2022 (CYCLE 4 ON 06/FEB/2023; LAST ON VENETOCLAX ON 19/FEB/20
     Route: 048
     Dates: start: 20220720
  2. VENETOCLAX [Suspect]
     Active Substance: VENETOCLAX
     Indication: Myelodysplastic syndrome
  3. VENETOCLAX [Suspect]
     Active Substance: VENETOCLAX
     Indication: Myeloproliferative neoplasm
  4. CEDAZURIDINE\DECITABINE [Suspect]
     Active Substance: CEDAZURIDINE\DECITABINE
     Indication: Acute myeloid leukaemia
     Dosage: ONCE ON DAYS 1, 3, 5, DOSE 100 MG/ 35 MG, ON 06/FEB/2023 RECEIVED LAST DOSE (PRIOR TO AE)
     Route: 048
     Dates: start: 20221003
  5. ACYCLOVIR [Concomitant]
     Active Substance: ACYCLOVIR
  6. CHOLECALCIFEROL [Concomitant]
     Active Substance: CHOLECALCIFEROL
  7. FOLIC ACID [Concomitant]
     Active Substance: FOLIC ACID
  8. INSULIN ASPART [Concomitant]
     Active Substance: INSULIN ASPART
  9. INSULIN GLARGINE [Concomitant]
     Active Substance: INSULIN GLARGINE
  10. METOPROLOL TARTRATE [Concomitant]
     Active Substance: METOPROLOL TARTRATE
  11. OMEPRAZOLE [Concomitant]
     Active Substance: OMEPRAZOLE
  12. PREDNISONE [Concomitant]
     Active Substance: PREDNISONE
  13. STANNOUS FLUORIDE [Concomitant]
     Active Substance: STANNOUS FLUORIDE
  14. SULFAMETHOXAZOLE\TRIMETHOPRIM [Concomitant]
     Active Substance: SULFAMETHOXAZOLE\TRIMETHOPRIM
  15. TACROLIMUS [Concomitant]
     Active Substance: TACROLIMUS
  16. VORICONAZOLE [Concomitant]
     Active Substance: VORICONAZOLE

REACTIONS (3)
  - Diverticulitis [Recovered/Resolved]
  - Platelet count decreased [Unknown]
  - Large intestine perforation [Recovered/Resolved]

NARRATIVE: CASE EVENT DATE: 20230406
